FAERS Safety Report 5551110-7 (Version None)
Quarter: 2007Q4

REPORT INFORMATION
  Report Type: 
  Country: None (occurrence: None)
  Receive Date: 20071128
  Receipt Date: 20070221
  Transmission Date: 20080405
  Serious: Yes (Other)
  Sender: FDA-Public Use
  Company Number: 2007016939

PATIENT
  Sex: Female

DRUGS (3)
  1. LIPITOR [Suspect]
  2. ZOLOFT [Suspect]
  3. ZESTRIL [Suspect]

REACTIONS (5)
  - ANGIOEDEMA [None]
  - GAIT DISTURBANCE [None]
  - MALAISE [None]
  - OEDEMA PERIPHERAL [None]
  - RESTLESSNESS [None]
